FAERS Safety Report 16747022 (Version 5)
Quarter: 2020Q1

REPORT INFORMATION
  Report Type: Spontaneous
  Country: JP (occurrence: JP)
  Receive Date: 20190827
  Receipt Date: 20200221
  Transmission Date: 20200409
  Serious: Yes (Hospitalization, Other)
  Sender: FDA-Public Use
  Company Number: JP-ASTRAZENECA-2019SF20559

PATIENT
  Age: 26790 Day
  Sex: Male
  Weight: 48 kg

DRUGS (13)
  1. PREDONINE [Suspect]
     Active Substance: PREDNISOLONE
     Indication: RADIATION PNEUMONITIS
     Route: 048
     Dates: start: 20190605, end: 20190611
  2. PREDONINE [Suspect]
     Active Substance: PREDNISOLONE
     Indication: RADIATION PNEUMONITIS
     Route: 048
     Dates: start: 20190612, end: 20190618
  3. NEXIUM [Concomitant]
     Active Substance: ESOMEPRAZOLE MAGNESIUM
     Indication: CHRONIC GASTRITIS
     Route: 048
  4. L-CARBOCISTEINE [Concomitant]
     Active Substance: CARBOCYSTEINE
     Dosage: DOSE UNKNOWN
     Route: 048
  5. PREDONINE [Suspect]
     Active Substance: PREDNISOLONE
     Indication: RADIATION PNEUMONITIS
     Route: 048
     Dates: start: 20190619, end: 20190630
  6. PREDONINE [Suspect]
     Active Substance: PREDNISOLONE
     Indication: RADIATION PNEUMONITIS
     Route: 048
     Dates: start: 20190508, end: 20190513
  7. ADOAIR [Concomitant]
     Active Substance: FLUTICASONE PROPIONATE\SALMETEROL XINAFOATE
     Indication: CHRONIC OBSTRUCTIVE PULMONARY DISEASE
     Route: 055
     Dates: start: 20190405, end: 20190608
  8. PREDONINE [Suspect]
     Active Substance: PREDNISOLONE
     Indication: RADIATION PNEUMONITIS
     Route: 048
     Dates: start: 20190522, end: 20190526
  9. PREDONINE [Suspect]
     Active Substance: PREDNISOLONE
     Indication: RADIATION PNEUMONITIS
     Route: 048
     Dates: start: 20190514, end: 20190517
  10. PREDONINE [Suspect]
     Active Substance: PREDNISOLONE
     Indication: RADIATION PNEUMONITIS
     Route: 048
     Dates: start: 20190527, end: 20190604
  11. IMFINZI [Suspect]
     Active Substance: DURVALUMAB
     Indication: NON-SMALL CELL LUNG CANCER
     Route: 041
     Dates: start: 20190409, end: 20190409
  12. PREDONINE [Suspect]
     Active Substance: PREDNISOLONE
     Indication: RADIATION PNEUMONITIS
     Route: 048
     Dates: start: 20190518, end: 20190521
  13. MIYA-BM [Concomitant]
     Active Substance: CLOSTRIDIUM BUTYRICUM SPORES STRAIN M-55
     Indication: CONSTIPATION
     Route: 048
     Dates: start: 20190218

REACTIONS (6)
  - Radiation pneumonitis [Recovering/Resolving]
  - Venous thrombosis limb [Recovering/Resolving]
  - Tuberculous pleurisy [Unknown]
  - Herpes zoster [Recovered/Resolved]
  - Pulmonary tuberculosis [Unknown]
  - Pneumothorax [Recovered/Resolved]

NARRATIVE: CASE EVENT DATE: 20190410
